FAERS Safety Report 7378714-3 (Version None)
Quarter: 2011Q1

REPORT INFORMATION
  Report Type: 
  Country: None (occurrence: None)
  Receive Date: 20110328
  Receipt Date: 20110303
  Transmission Date: 20110831
  Serious: No
  Sender: FDA-Public Use
  Company Number: US-B.I. PHARMACEUTICALS,INC./RIDGEFIELD-2011-BP-06378BP

PATIENT
  Age: 65 Year
  Sex: Female

DRUGS (3)
  1. CLONIDINE [Concomitant]
     Indication: HYPERTENSION
  2. EYE DROPS [Concomitant]
     Indication: GLAUCOMA
  3. ZANTAC 150 [Suspect]
     Indication: DYSPEPSIA
     Dosage: 150 MG
     Route: 048
     Dates: start: 20110303

REACTIONS (2)
  - VOMITING [None]
  - ABDOMINAL PAIN UPPER [None]
